FAERS Safety Report 15362712 (Version 4)
Quarter: 2018Q3

REPORT INFORMATION
  Report Type: Spontaneous
  Country: BR (occurrence: BR)
  Receive Date: 20180907
  Receipt Date: 20180925
  Transmission Date: 20181010
  Serious: Yes (Other)
  Sender: FDA-Public Use
  Company Number: PHHY2018BR089577

PATIENT
  Sex: Male
  Weight: 35 kg

DRUGS (1)
  1. RITALINA [Suspect]
     Active Substance: METHYLPHENIDATE HYDROCHLORIDE
     Indication: ATTENTION DEFICIT/HYPERACTIVITY DISORDER
     Dosage: 1 DF, BID (1 IN MORNING AND 1 IN AFTERNOON)
     Route: 048

REACTIONS (5)
  - Agitation [Recovered/Resolved]
  - Disturbance in attention [Recovered/Resolved]
  - Impulse-control disorder [Recovered/Resolved]
  - Drug dependence [Recovered/Resolved]
  - Dyskinesia [Recovered/Resolved]
